FAERS Safety Report 16988754 (Version 1)
Quarter: 2019Q4

REPORT INFORMATION
  Report Type: Spontaneous
  Country: US (occurrence: US)
  Receive Date: 20191101
  Receipt Date: 20191101
  Transmission Date: 20200122
  Serious: Yes (Other)
  Sender: FDA-Public Use
  Company Number: None

PATIENT
  Age: 46 Year
  Sex: Female
  Weight: 72 kg

DRUGS (5)
  1. LEVOTHYROXINE 0.1375 DAILY [Concomitant]
  2. VENLAFAXINE [Suspect]
     Active Substance: VENLAFAXINE HYDROCHLORIDE
     Indication: HOT FLUSH
     Route: 048
  3. PROTINIX 40MG DAILY [Concomitant]
  4. POTASSIUM CHLORIDE 20MEQ DAILY [Concomitant]
  5. LOSAARTAN 25MG DAILY [Concomitant]

REACTIONS (1)
  - Drug withdrawal syndrome [None]

NARRATIVE: CASE EVENT DATE: 20191031
